FAERS Safety Report 25385587 (Version 3)
Quarter: 2025Q2

REPORT INFORMATION
  Report Type: Spontaneous
  Country: US (occurrence: US)
  Receive Date: 20250602
  Receipt Date: 20250612
  Transmission Date: 20250717
  Serious: Yes (Hospitalization)
  Sender: NEUROCRINE BIOSCIENCES
  Company Number: US-NEUROCRINE BIOSCIENCES INC.-2025NBI06767

PATIENT
  Age: 55 Year
  Sex: Female

DRUGS (9)
  1. INGREZZA [Suspect]
     Active Substance: VALBENAZINE DITOSYLATE
     Indication: Tardive dyskinesia
     Route: 065
     Dates: start: 20250418, end: 20250510
  2. DEPAKOTE [Concomitant]
     Active Substance: DIVALPROEX SODIUM
  3. INVEGA [Concomitant]
     Active Substance: PALIPERIDONE
  4. KEPPRA [Concomitant]
     Active Substance: LEVETIRACETAM
  5. AMITRIPTYLINE [Concomitant]
     Active Substance: AMITRIPTYLINE
  6. ATORVASTATIN [Concomitant]
     Active Substance: ATORVASTATIN
  7. GABAPENTIN [Concomitant]
     Active Substance: GABAPENTIN
  8. LANTUS [Concomitant]
     Active Substance: INSULIN GLARGINE
  9. NOVOLOG [Concomitant]
     Active Substance: INSULIN ASPART

REACTIONS (2)
  - Angioedema [Recovered/Resolved]
  - Dehydration [Recovered/Resolved]

NARRATIVE: CASE EVENT DATE: 20250510
